FAERS Safety Report 10128577 (Version 2)
Quarter: 2014Q2

REPORT INFORMATION
  Report Type: Spontaneous
  Country: JP (occurrence: JP)
  Receive Date: 20140428
  Receipt Date: 20140519
  Transmission Date: 20141212
  Serious: Yes (Hospitalization)
  Sender: FDA-Public Use
  Company Number: JP-JNJFOC-20140414021

PATIENT
  Age: 71 Year
  Sex: Male
  Weight: 44.9 kg

DRUGS (4)
  1. XARELTO [Suspect]
     Indication: CEREBROVASCULAR ACCIDENT PROPHYLAXIS
     Route: 048
     Dates: start: 20131214, end: 20140412
  2. FUROSEMIDE [Concomitant]
     Route: 048
     Dates: start: 20120825
  3. DIGOXIN [Concomitant]
     Route: 048
     Dates: start: 20120825
  4. BISOPROLOL [Concomitant]
     Route: 048
     Dates: start: 20120825

REACTIONS (1)
  - Interstitial lung disease [Recovering/Resolving]
